FAERS Safety Report 24611951 (Version 1)
Quarter: 2024Q4

REPORT INFORMATION
  Report Type: Spontaneous
  Country: US (occurrence: US)
  Receive Date: 20241113
  Receipt Date: 20241113
  Transmission Date: 20250114
  Serious: Yes (Other)
  Sender: AVERITAS
  Company Number: US-GRUNENTHAL-2024-136361

PATIENT
  Sex: Female

DRUGS (1)
  1. QUTENZA [Suspect]
     Active Substance: CAPSAICIN
     Indication: Post herpetic neuralgia
     Dosage: 1 DOSAGE FORM, ONCE
     Route: 061
     Dates: start: 202410, end: 202410

REACTIONS (1)
  - Cerebrovascular accident [Unknown]
